FAERS Safety Report 20491026 (Version 1)
Quarter: 2022Q1

REPORT INFORMATION
  Report Type: Spontaneous
  Country: US (occurrence: None)
  Receive Date: 20220218
  Receipt Date: 20220218
  Transmission Date: 20220423
  Serious: No
  Sender: FDA-Public Use
  Company Number: None

PATIENT
  Age: 49 Year
  Sex: Female

DRUGS (4)
  1. ENBREL [Suspect]
     Active Substance: ETANERCEPT
     Indication: Rheumatoid arthritis
     Dosage: FREQUENCY : WEEKLY;?
     Route: 058
     Dates: start: 202111
  2. ENBREL [Suspect]
     Active Substance: ETANERCEPT
     Indication: Joint effusion
  3. ENBREL [Suspect]
     Active Substance: ETANERCEPT
     Indication: Arthralgia
  4. ENBREL [Suspect]
     Active Substance: ETANERCEPT
     Indication: Spinal osteoarthritis

REACTIONS (1)
  - COVID-19 [None]
